FAERS Safety Report 11388843 (Version 1)
Quarter: 2015Q3

REPORT INFORMATION
  Report Type: Spontaneous
  Country: GB (occurrence: GB)
  Receive Date: 20150811
  Receipt Date: 20150811
  Transmission Date: 20151125
  Serious: Yes (Other)
  Sender: FDA-Public Use
  Company Number: GB-APOTEX-2015AP007487

PATIENT

DRUGS (2)
  1. PAXIL [Suspect]
     Active Substance: PAROXETINE HYDROCHLORIDE
     Dosage: 30 MG, UNK
  2. PAXIL [Suspect]
     Active Substance: PAROXETINE HYDROCHLORIDE
     Indication: PRODUCT USED FOR UNKNOWN INDICATION
     Dosage: 30 MG, UNK

REACTIONS (9)
  - Dizziness [Recovering/Resolving]
  - Tinnitus [Recovering/Resolving]
  - Bedridden [Recovering/Resolving]
  - Fall [Recovering/Resolving]
  - Inner ear disorder [Recovering/Resolving]
  - Lower respiratory tract infection [Recovering/Resolving]
  - Product quality issue [Unknown]
  - Suspected counterfeit product [Unknown]
  - Influenza [Recovering/Resolving]

NARRATIVE: CASE EVENT DATE: 201502
